FAERS Safety Report 8187058-1 (Version None)
Quarter: 2012Q1

REPORT INFORMATION
  Report Type: 
  Country: None (occurrence: None)
  Receive Date: 20120306
  Receipt Date: 20120227
  Transmission Date: 20120608
  Serious: Yes (Other)
  Sender: FDA-Public Use
  Company Number: US-SANOFI-AVENTIS-2012SA013534

PATIENT
  Age: 60 Year
  Sex: Male

DRUGS (9)
  1. AMBIEN [Suspect]
     Route: 048
     Dates: start: 20100101, end: 20120101
  2. LUNESTA [Concomitant]
  3. TRAZODONE HCL [Concomitant]
  4. AMBIEN CR [Suspect]
     Route: 048
  5. XANAX [Concomitant]
  6. ZOLPIDEM TARTRATE [Suspect]
  7. AMBIEN [Suspect]
     Route: 048
     Dates: start: 20030101, end: 20100101
  8. AMBIEN [Suspect]
     Route: 048
     Dates: start: 20120201, end: 20120201
  9. REMERON [Concomitant]

REACTIONS (6)
  - ABNORMAL BEHAVIOUR [None]
  - DRUG INEFFECTIVE [None]
  - PRODUCT QUALITY ISSUE [None]
  - DRUG ABUSE [None]
  - PROSTATE CANCER [None]
  - INTENTIONAL OVERDOSE [None]
